FAERS Safety Report 4815464-9 (Version None)
Quarter: 2005Q4

REPORT INFORMATION
  Report Type: 
  Country: None (occurrence: None)
  Receive Date: 20051031
  Receipt Date: 20051018
  Transmission Date: 20060501
  Serious: Yes (Hospitalization)
  Sender: FDA-Public Use
  Company Number: US-JNJFOC-20051004144

PATIENT
  Sex: Female

DRUGS (24)
  1. INFLIXIMAB [Suspect]
     Route: 042
  2. INFLIXIMAB [Suspect]
     Route: 042
  3. INFLIXIMAB [Suspect]
     Route: 042
  4. INFLIXIMAB [Suspect]
     Indication: RHEUMATOID ARTHRITIS
     Route: 042
  5. PREDNISONE [Suspect]
     Indication: RHEUMATOID ARTHRITIS
  6. ENBREL [Suspect]
     Indication: RHEUMATOID ARTHRITIS
  7. SPORANOX [Concomitant]
  8. RESTASIS [Concomitant]
     Dosage: 2 IN EACH EYE
  9. TEMAZEPAM [Concomitant]
  10. LEXAPRO [Concomitant]
  11. PREMPRO [Concomitant]
  12. PREMPRO [Concomitant]
  13. FOSAMAX [Concomitant]
  14. PROPOXYPHENE HCL AND ACETAMINOPHEN [Concomitant]
  15. NAPROXEN SODIUM [Concomitant]
  16. RANITIDINE HYDROCHLORIDE [Concomitant]
  17. COMPAZINE [Concomitant]
  18. REGLAN [Concomitant]
  19. ALLEGRA [Concomitant]
  20. SYNTHROID [Concomitant]
  21. VITAMIN D [Concomitant]
  22. PLAQUENIL [Concomitant]
  23. FOLIC ACID [Concomitant]
  24. METHOTREXATE [Concomitant]

REACTIONS (14)
  - ACUTE RESPIRATORY DISTRESS SYNDROME [None]
  - ANAEMIA OF CHRONIC DISEASE [None]
  - BETA HAEMOLYTIC STREPTOCOCCAL INFECTION [None]
  - COCCIDIOIDOMYCOSIS [None]
  - ENTEROCOCCAL INFECTION [None]
  - ERYTHEMA MULTIFORME [None]
  - GASTROINTESTINAL HAEMORRHAGE [None]
  - HERPES VIRUS INFECTION [None]
  - PNEUMONIA LEGIONELLA [None]
  - PNEUMOTHORAX TRAUMATIC [None]
  - POLYNEUROPATHY [None]
  - PULMONARY EMBOLISM [None]
  - SEPTIC SHOCK [None]
  - STAPHYLOCOCCAL BACTERAEMIA [None]
